FAERS Safety Report 4821230-0 (Version None)
Quarter: 2005Q4

REPORT INFORMATION
  Report Type: 
  Country: None (occurrence: None)
  Receive Date: 20051103
  Receipt Date: 20050114
  Transmission Date: 20060501
  Serious: Yes (Death, Hospitalization)
  Sender: FDA-Public Use
  Company Number: 2005013966

PATIENT
  Age: 101 Year
  Sex: Female

DRUGS (11)
  1. BEXTRA [Suspect]
     Indication: OSTEOARTHRITIS
     Dates: start: 20041002
  2. CELECOXIB (CELECOXIB) [Concomitant]
  3. ASCORBIC ACID [Concomitant]
  4. CLOPIDOGREL BISULFATE [Concomitant]
  5. FERROUS SULFATE TAB [Concomitant]
  6. IPRATROPIUM BROMIDE [Concomitant]
  7. ISOSORBIDE MONONITRATE [Concomitant]
  8. LANSOPRAZOLE [Concomitant]
  9. MIRTAZAPINE [Concomitant]
  10. PAROXETINE HCL [Concomitant]
  11. ALCLOMETASONE DIPROPIONATE (ALCLOMETASONE DIPROPIONATE) [Concomitant]

REACTIONS (1)
  - RENAL FAILURE ACUTE [None]
